FAERS Safety Report 9347070 (Version 1)
Quarter: 2013Q2

REPORT INFORMATION
  Report Type: Report from Study
  Country: US (occurrence: US)
  Receive Date: 20130613
  Receipt Date: 20130613
  Transmission Date: 20140414
  Serious: Yes (Death)
  Sender: FDA-Public Use
  Company Number: US-GLAXOSMITHKLINE-B0880951A

PATIENT
  Age: 4 Year
  Sex: Male

DRUGS (9)
  1. MELPHALAN [Suspect]
     Indication: NEUROBLASTOMA
     Dosage: 140MGM2 SINGLE DOSE
     Route: 042
  2. BUSULPHAN [Suspect]
     Indication: NEUROBLASTOMA
     Route: 042
  3. IOBENGUANE [Concomitant]
     Indication: NEUROBLASTOMA
     Dosage: 307MCI CUMULATIVE DOSE
     Route: 042
  4. POTASSIUM PERCHLORATE [Concomitant]
     Indication: PROPHYLAXIS
     Route: 065
  5. POTASSIUM IODIDE [Concomitant]
     Indication: PROPHYLAXIS
     Route: 065
  6. GRANULOCYTE COLONY-STIMULATING FACTOR [Concomitant]
     Indication: NEUTROPHIL COUNT DECREASED
     Dosage: 5MCK PER DAY
     Route: 042
  7. URSODIOL [Concomitant]
     Indication: PROPHYLAXIS
     Route: 065
  8. IODINE 131 [Concomitant]
     Indication: NEUROBLASTOMA
     Route: 065
  9. N-ACETYLCYSTEINE [Concomitant]
     Indication: PROPHYLAXIS

REACTIONS (8)
  - Venoocclusive liver disease [Fatal]
  - Respiratory failure [Fatal]
  - Hyperbilirubinaemia [Unknown]
  - Haemorrhage [Unknown]
  - Haematotoxicity [Recovering/Resolving]
  - Mucosal inflammation [Recovered/Resolved]
  - Coagulopathy [Unknown]
  - Capillary permeability increased [Unknown]
